FAERS Safety Report 6603820-8 (Version None)
Quarter: 2010Q1

REPORT INFORMATION
  Report Type: 
  Country: None (occurrence: None)
  Receive Date: 20100226
  Receipt Date: 20090210
  Transmission Date: 20100710
  Serious: No
  Sender: FDA-Public Use
  Company Number: A0767980A

PATIENT
  Age: 42 Year
  Sex: Female

DRUGS (3)
  1. LAMICTAL CD [Suspect]
     Indication: BIPOLAR DISORDER
     Dosage: 250MG PER DAY
     Route: 048
     Dates: start: 20000101
  2. RESTORIL [Concomitant]
  3. STRATTERA [Concomitant]

REACTIONS (4)
  - DRUG ADMINISTRATION ERROR [None]
  - DYSPHAGIA [None]
  - HYPERSENSITIVITY [None]
  - SWOLLEN TONGUE [None]
